FAERS Safety Report 20784349 (Version 1)
Quarter: 2022Q2

REPORT INFORMATION
  Report Type: Spontaneous
  Country: US (occurrence: US)
  Receive Date: 20220504
  Receipt Date: 20220504
  Transmission Date: 20220721
  Serious: Yes (Other)
  Sender: FDA-Public Use
  Company Number: US-SA-SAC20220502001529

PATIENT
  Age: 61 Year
  Sex: Female

DRUGS (1)
  1. ZANTAC [Suspect]
     Active Substance: RANITIDINE HYDROCHLORIDE
     Indication: Dyspepsia
     Dosage: 75 MG; FREQUENCY: OTHER
     Route: 065
     Dates: start: 200201, end: 201901

REACTIONS (5)
  - Bladder cancer stage II [Unknown]
  - Lung neoplasm malignant [Unknown]
  - Ovarian cancer stage II [Not Recovered/Not Resolved]
  - Uterine cancer [Recovering/Resolving]
  - Disease progression [Not Recovered/Not Resolved]

NARRATIVE: CASE EVENT DATE: 20090101
